FAERS Safety Report 7675802-9 (Version None)
Quarter: 2011Q3

REPORT INFORMATION
  Report Type: 
  Country: None (occurrence: None)
  Receive Date: 20110810
  Receipt Date: 20110726
  Transmission Date: 20111222
  Serious: Yes (Hospitalization)
  Sender: FDA-Public Use
  Company Number: JP-PFIZER INC-2011175434

PATIENT
  Age: 54 Year
  Sex: Male

DRUGS (21)
  1. SALOBEL [Concomitant]
     Dosage: 100 MG, 3X/DAY
     Route: 048
     Dates: start: 20110705, end: 20110707
  2. MAGNESIUM OXIDE HEAVY [Concomitant]
     Dosage: 0.67 G, 1X/DAY
     Route: 048
     Dates: start: 20110714, end: 20110714
  3. AMPICILLIN SODIUM/SULBACTAM SODIUM [Concomitant]
     Dosage: 1.5 MG, 1X/DAY IJ
     Dates: start: 20110707, end: 20110715
  4. PURSENNID [Concomitant]
     Dosage: 24 MG, UNK
     Route: 048
     Dates: start: 20110711, end: 20110712
  5. ISODINE [Concomitant]
     Dosage: UNK
     Dates: start: 20110714
  6. MAGNESIUM OXIDE HEAVY [Concomitant]
     Dosage: 0.5 G, 3X/DAY
     Route: 048
     Dates: start: 20110714, end: 20110721
  7. ONCOVIN [Suspect]
     Indication: ADULT T-CELL LYMPHOMA/LEUKAEMIA
     Dosage: 1 MG, 1X/DAY
     Dates: start: 20110706, end: 20110706
  8. LOXOPROFEN [Concomitant]
     Dosage: 6 MG, UNK
     Route: 048
     Dates: start: 20110705
  9. POLARAMINE [Concomitant]
     Dosage: 2 MG, 1X/DAY
     Route: 048
     Dates: start: 20110707, end: 20110707
  10. HYDROCORTONE [Suspect]
     Indication: ADULT T-CELL LYMPHOMA/LEUKAEMIA
     Dosage: 100 MG, 1X/DAY
     Dates: start: 20110706, end: 20110706
  11. KW-0761 [Suspect]
     Indication: ADULT T-CELL LYMPHOMA/LEUKAEMIA
     Dosage: UNK
     Route: 041
     Dates: start: 20110707
  12. CEFEPIME DIHYDROCHLORIDE HYDRATE [Concomitant]
     Dosage: 1.5 MG, 1X/DAY IJ
     Dates: start: 20110715
  13. MAGNESIUM OXIDE HEAVY [Concomitant]
     Dosage: 0.5 G, 2X/DAY
     Route: 048
     Dates: start: 20110707, end: 20110713
  14. PURSENNID [Concomitant]
     Dosage: 24 MG, UNK
     Route: 048
     Dates: start: 20110714, end: 20110714
  15. DOXORUBICIN HYDROCHLORIDE [Suspect]
     Indication: ADULT T-CELL LYMPHOMA/LEUKAEMIA
     Dosage: 40 MG, 1X/DAY
     Dates: start: 20110706
  16. ACETAMINOPHEN [Concomitant]
     Dosage: 400 MG, 1X/DAY
     Route: 048
     Dates: start: 20110707, end: 20110707
  17. BROTIZOLAM [Concomitant]
     Dosage: 0.25 MG, 1X/DAY
     Route: 048
     Dates: start: 20110707, end: 20110721
  18. SULFAMETHOXAZOLE [Concomitant]
     Dosage: 1 G, 1X/DAY
     Route: 048
     Dates: start: 20110707
  19. FLUCONAZOLE [Concomitant]
     Dosage: 100 MG, 1X/DAY
     Route: 048
     Dates: start: 20110715, end: 20110721
  20. PREDNISOLONE [Suspect]
     Indication: ADULT T-CELL LYMPHOMA/LEUKAEMIA
     Dosage: 40 MG, 1X/DAY
     Route: 048
     Dates: start: 20110706, end: 20110706
  21. CYCLOPHOSPHAMIDE [Suspect]
     Indication: ADULT T-CELL LYMPHOMA/LEUKAEMIA
     Dosage: 350 MG, 1X/DAY
     Dates: start: 20110706, end: 20110706

REACTIONS (1)
  - PNEUMONIA CYTOMEGALOVIRAL [None]
